FAERS Safety Report 22973441 (Version 2)
Quarter: 2024Q1

REPORT INFORMATION
  Report Type: Spontaneous
  Country: FR (occurrence: FR)
  Receive Date: 20230922
  Receipt Date: 20240305
  Transmission Date: 20240409
  Serious: Yes (Hospitalization, Other)
  Sender: FDA-Public Use
  Company Number: None

PATIENT
  Age: 67 Year
  Sex: Male

DRUGS (2)
  1. PEMBROLIZUMAB [Suspect]
     Active Substance: PEMBROLIZUMAB
     Indication: Renal cancer
     Dosage: UNK
     Route: 042
     Dates: start: 2021, end: 20230901
  2. AXITINIB [Concomitant]
     Active Substance: AXITINIB
     Indication: Renal cancer
     Route: 048
     Dates: start: 2021, end: 20230112

REACTIONS (2)
  - Acute kidney injury [Recovering/Resolving]
  - Proctitis [Recovered/Resolved]

NARRATIVE: CASE EVENT DATE: 20230112
